FAERS Safety Report 11808057 (Version 1)
Quarter: 2015Q4

REPORT INFORMATION
  Report Type: Spontaneous
  Country: US (occurrence: US)
  Receive Date: 20151207
  Receipt Date: 20151207
  Transmission Date: 20160305
  Serious: No
  Sender: FDA-Public Use
  Company Number: US-ENDO PHARMACEUTICALS INC.-201502088

PATIENT
  Sex: Male
  Weight: 99.88 kg

DRUGS (5)
  1. TESTIM [Suspect]
     Active Substance: TESTOSTERONE
     Route: 062
     Dates: start: 201501, end: 201501
  2. TESTIM [Suspect]
     Active Substance: TESTOSTERONE
     Route: 062
  3. LASIX [Concomitant]
     Active Substance: FUROSEMIDE
  4. ANTIHYPERTENSIVES [Concomitant]
     Active Substance: UNSPECIFIED INGREDIENT
  5. LIPITOR [Concomitant]
     Active Substance: ATORVASTATIN CALCIUM

REACTIONS (1)
  - Weight increased [Not Recovered/Not Resolved]
